FAERS Safety Report 10189527 (Version 2)
Quarter: 2014Q2

REPORT INFORMATION
  Report Type: Spontaneous
  Country: FR (occurrence: FR)
  Receive Date: 20140522
  Receipt Date: 20140522
  Transmission Date: 20141212
  Serious: Yes (Other)
  Sender: FDA-Public Use
  Company Number: FR-TEVA-478649ISR

PATIENT
  Age: 34 Year
  Sex: Female
  Weight: 62 kg

DRUGS (1)
  1. COPAXONE [Suspect]
     Indication: RELAPSING-REMITTING MULTIPLE SCLEROSIS
     Dosage: 20 MILLIGRAM DAILY; COPAXONE TREATMENT WAS STARTED 2 YEARS AND A HALF AGO
     Route: 058
     Dates: start: 20110901

REACTIONS (9)
  - Injection site haematoma [Recovered/Resolved with Sequelae]
  - Injection site pain [Recovered/Resolved]
  - Injection site oedema [Recovered/Resolved]
  - Injection site erythema [Recovered/Resolved]
  - Injection site paraesthesia [Recovered/Resolved]
  - Injection site mass [Recovered/Resolved]
  - Injection site bruising [Recovered/Resolved]
  - Gait disturbance [Unknown]
  - Injection site induration [Not Recovered/Not Resolved]
